FAERS Safety Report 6297886-5 (Version None)
Quarter: 2009Q3

REPORT INFORMATION
  Report Type: 
  Country: None (occurrence: None)
  Receive Date: 20090804
  Receipt Date: 20090804
  Transmission Date: 20100115
  Serious: Yes (Hospitalization)
  Sender: FDA-Public Use
  Company Number: None

PATIENT
  Age: 61 Year
  Sex: Female
  Weight: 77.2 kg

DRUGS (1)
  1. MELOXICAM [Suspect]
     Dates: start: 20090409, end: 20090714

REACTIONS (1)
  - STEVENS-JOHNSON SYNDROME [None]
